FAERS Safety Report 11263683 (Version 2)
Quarter: 2015Q4

REPORT INFORMATION
  Report Type: Spontaneous
  Country: BR (occurrence: BR)
  Receive Date: 20150713
  Receipt Date: 20151014
  Transmission Date: 20160304
  Serious: Yes (Hospitalization, Other)
  Sender: FDA-Public Use
  Company Number: BR-PFIZER INC-2015225414

PATIENT
  Age: 69 Year
  Sex: Female
  Weight: 57 kg

DRUGS (9)
  1. EUTIROX [Concomitant]
     Active Substance: LEVOTHYROXINE SODIUM
     Indication: THYROID DISORDER
     Dosage: 1 TABLET, DAILY
     Dates: start: 2010
  2. COMBIGAN [Concomitant]
     Active Substance: BRIMONIDINE TARTRATE\TIMOLOL MALEATE
     Dosage: DRIP 1 DROP IN EYES EVERY 12HOURS
     Dates: start: 20141205
  3. PANTOPRAZOLE [Concomitant]
     Active Substance: PANTOPRAZOLE SODIUM
     Indication: ABDOMINAL DISCOMFORT
     Dosage: ^20 ML^; 1 TABLET, DAILY
     Dates: start: 2013
  4. XALATAN [Suspect]
     Active Substance: LATANOPROST
     Indication: GLAUCOMA
     Dosage: ONE DROP IN EACH EYE, 1X/DAY AT NIGHT
     Route: 047
     Dates: start: 2014
  5. XALATAN [Suspect]
     Active Substance: LATANOPROST
     Indication: DIABETES MELLITUS
  6. LANTUS [Concomitant]
     Active Substance: INSULIN GLARGINE
     Indication: DIABETES MELLITUS
     Dosage: ONE APPLICATION AT NIGHT
     Dates: start: 2014
  7. ROSUCOR [Concomitant]
     Active Substance: ROSUVASTATIN CALCIUM
     Indication: BLOOD CHOLESTEROL
     Dosage: 1 TABLET, PER DAY
     Dates: start: 201506
  8. COMBIGAN [Concomitant]
     Active Substance: BRIMONIDINE TARTRATE\TIMOLOL MALEATE
     Dosage: UNK, 1X/DAY
  9. VASOPRIL PLUS [Concomitant]
     Active Substance: ENALAPRIL MALEATE\HYDROCHLOROTHIAZIDE
     Indication: HYPERTENSION
     Dosage: 1 TABLET, DAILY
     Dates: start: 2011

REACTIONS (11)
  - Ophthalmic vein thrombosis [Unknown]
  - Angiopathy [Unknown]
  - Eye pain [Unknown]
  - Optic nerve disorder [Unknown]
  - Eye disorder [Unknown]
  - Retinal ischaemia [Recovering/Resolving]
  - Blindness [Not Recovered/Not Resolved]
  - Off label use [Not Recovered/Not Resolved]
  - Cerebrovascular accident [Unknown]
  - Visual acuity reduced [Not Recovered/Not Resolved]
  - Macular reflex abnormal [Unknown]

NARRATIVE: CASE EVENT DATE: 2014
